FAERS Safety Report 24771240 (Version 2)
Quarter: 2025Q1

REPORT INFORMATION
  Report Type: Spontaneous
  Country: CA (occurrence: CA)
  Receive Date: 20241224
  Receipt Date: 20250131
  Transmission Date: 20250409
  Serious: Yes (Life-Threatening, Other)
  Sender: SANOFI AVENTIS
  Company Number: CA-SA-2024SA375407

PATIENT
  Age: 1 Year
  Sex: Male
  Weight: 8.6 kg

DRUGS (26)
  1. ALEMTUZUMAB [Suspect]
     Active Substance: ALEMTUZUMAB
     Indication: Bone marrow transplant
     Route: 042
     Dates: start: 2023, end: 2023
  2. BUSULFAN [Suspect]
     Active Substance: BUSULFAN
     Indication: Bone marrow transplant
     Route: 042
  3. FLUDARABINE [Suspect]
     Active Substance: FLUDARABINE PHOSPHATE
     Indication: Bone marrow transplant
     Route: 042
     Dates: start: 2023, end: 2023
  4. ACETAMINOPHEN [Concomitant]
     Active Substance: ACETAMINOPHEN
     Dates: start: 2023, end: 2023
  5. AMLODIPINE [Concomitant]
     Active Substance: AMLODIPINE BESYLATE
     Route: 065
     Dates: start: 2023, end: 2023
  6. BETAMETHASONE [Concomitant]
     Active Substance: BETAMETHASONE
     Dates: start: 2023, end: 2023
  7. CEFEPIME HYDROCHLORIDE [Concomitant]
     Active Substance: CEFEPIME HYDROCHLORIDE
     Route: 030
     Dates: start: 2023, end: 2023
  8. CHOLECALCIFEROL [Concomitant]
     Active Substance: CHOLECALCIFEROL
     Dates: start: 2023, end: 2023
  9. DIPHENHYDRAMINE [Concomitant]
     Active Substance: DIPHENHYDRAMINE
     Dates: start: 2023, end: 2023
  10. FAMOTIDINE [Concomitant]
     Active Substance: FAMOTIDINE
     Dates: start: 2023, end: 2023
  11. FLUCONAZOLE [Concomitant]
     Active Substance: FLUCONAZOLE
     Dates: start: 2023, end: 2023
  12. FUROSEMIDE [Concomitant]
     Active Substance: FUROSEMIDE
     Dates: start: 2023, end: 2023
  13. LEVETIRACETAM [Concomitant]
     Active Substance: LEVETIRACETAM
     Dates: start: 2023, end: 2023
  14. LORAZEPAM [Concomitant]
     Active Substance: LORAZEPAM
     Dates: start: 2023, end: 2023
  15. METHYLPREDNISOLONE [Concomitant]
     Active Substance: METHYLPREDNISOLONE
     Dates: start: 2023, end: 2023
  16. METOCLOPRAMIDE [Concomitant]
     Active Substance: METOCLOPRAMIDE
     Dates: start: 2023, end: 2023
  17. MYCOPHENOLATE MOFETIL [Concomitant]
     Active Substance: MYCOPHENOLATE MOFETIL
     Dates: start: 2023, end: 2023
  18. ONDANSETRON [Concomitant]
     Active Substance: ONDANSETRON
     Dates: start: 2023, end: 2023
  19. POLYETHYLENE GLYCOL [Concomitant]
     Active Substance: POLYETHYLENE GLYCOL
     Dates: start: 2023, end: 2023
  20. POTASSIUM [Concomitant]
     Active Substance: POTASSIUM
     Dates: start: 2023, end: 2023
  21. PREDNISONE [Concomitant]
     Active Substance: PREDNISONE
     Dates: start: 2023, end: 2023
  22. SIROLIMUS [Concomitant]
     Active Substance: SIROLIMUS
     Dates: start: 2023, end: 2023
  23. MORPHINE [Concomitant]
     Active Substance: MORPHINE
     Route: 042
     Dates: start: 2023, end: 2023
  24. KETAMINE [Concomitant]
     Active Substance: KETAMINE
     Route: 042
     Dates: start: 2023, end: 2023
  25. DEXMEDETOMIDINE [Concomitant]
     Active Substance: DEXMEDETOMIDINE
     Route: 042
     Dates: start: 2023, end: 2023
  26. HYDROMORPHONE [Concomitant]
     Active Substance: HYDROMORPHONE
     Route: 042
     Dates: start: 2023, end: 2023

REACTIONS (3)
  - Aplastic anaemia [Recovered/Resolved]
  - Mucosal inflammation [Recovered/Resolved]
  - Diarrhoea [Recovered/Resolved]

NARRATIVE: CASE EVENT DATE: 20230101
